FAERS Safety Report 6582028-9 (Version None)
Quarter: 2010Q1

REPORT INFORMATION
  Report Type: 
  Country: None (occurrence: None)
  Receive Date: 20100215
  Receipt Date: 20100205
  Transmission Date: 20100710
  Serious: Yes (Other)
  Sender: FDA-Public Use
  Company Number: IT-JNJFOC-20100203417

PATIENT
  Age: 73 Year
  Sex: Male

DRUGS (14)
  1. TAVANIC [Suspect]
     Indication: ANTIBIOTIC PROPHYLAXIS
     Route: 048
  2. TRIATEC [Concomitant]
     Route: 065
  3. DILTIAZEM HCL [Concomitant]
     Route: 065
  4. LASIX [Concomitant]
     Route: 065
  5. ASPIRIN [Concomitant]
     Route: 065
  6. AMARYL [Concomitant]
     Route: 065
  7. EPINITRIL [Concomitant]
     Route: 065
  8. CRESTOR [Concomitant]
     Route: 065
  9. ATENOLOL [Concomitant]
     Route: 065
  10. NADROPARIN CALCIUM [Concomitant]
     Route: 065
  11. NEXIUM [Concomitant]
     Route: 065
  12. TERAZOSIN HYDROCHLORIDE [Concomitant]
     Route: 065
  13. CALCIUM FOLINATE [Concomitant]
     Route: 065
  14. FERROUS SULFATE TAB [Concomitant]
     Route: 065

REACTIONS (4)
  - AGGRESSION [None]
  - ALTERED VISUAL DEPTH PERCEPTION [None]
  - HALLUCINATION, VISUAL [None]
  - PETIT MAL EPILEPSY [None]
